FAERS Safety Report 9849138 (Version 1)
Quarter: 2014Q1

REPORT INFORMATION
  Report Type: Spontaneous
  Country: US (occurrence: US)
  Receive Date: 20140128
  Receipt Date: 20140128
  Transmission Date: 20141002
  Serious: No
  Sender: FDA-Public Use
  Company Number: US-ABBVIE-13P-163-1066629-00

PATIENT
  Age: 71 Year
  Sex: Male

DRUGS (3)
  1. LUPRON DEPOT [Suspect]
     Indication: PRODUCT USED FOR UNKNOWN INDICATION
  2. TOPROL [Concomitant]
     Indication: PRODUCT USED FOR UNKNOWN INDICATION
  3. ASPIRIN [Concomitant]
     Indication: PRODUCT USED FOR UNKNOWN INDICATION

REACTIONS (3)
  - Injection site warmth [Unknown]
  - Injection site erythema [Unknown]
  - Injection site swelling [Unknown]
